FAERS Safety Report 9561574 (Version 2)
Quarter: 2013Q4

REPORT INFORMATION
  Report Type: Spontaneous
  Country: US (occurrence: US)
  Receive Date: 20130927
  Receipt Date: 20131231
  Transmission Date: 20140711
  Serious: No
  Sender: FDA-Public Use
  Company Number: US-BIOGENIDEC-2013BI061476

PATIENT
  Sex: Male

DRUGS (5)
  1. TECFIDERA [Suspect]
     Indication: MULTIPLE SCLEROSIS
     Route: 048
     Dates: start: 20130524
  2. AMPYRA [Concomitant]
  3. LOSARTAN POTASSIUM [Concomitant]
  4. MIRTAZAPINE [Concomitant]
  5. NAPROXEN DR [Concomitant]

REACTIONS (2)
  - Muscle spasms [Unknown]
  - Rhinitis [Unknown]
